FAERS Safety Report 9529079 (Version 1)
Quarter: 2013Q3

REPORT INFORMATION
  Report Type: Not Available
  Country: US (occurrence: US)
  Receive Date: 20130916
  Receipt Date: 20130916
  Transmission Date: 20140515
  Serious: No
  Sender: FDA-Public Use
  Company Number: US-LUNDBECK-DKLU1087154

PATIENT
  Age: 39 Year
  Sex: Male

DRUGS (1)
  1. ONFI [Suspect]
     Indication: COMPLEX PARTIAL SEIZURES
     Route: 048
     Dates: start: 20121210

REACTIONS (2)
  - Chills [Unknown]
  - Muscle twitching [Unknown]
